FAERS Safety Report 9413342 (Version 2)
Quarter: 2014Q1

REPORT INFORMATION
  Report Type: Not Available
  Country: FR (occurrence: FR)
  Receive Date: 20130722
  Receipt Date: 20140108
  Transmission Date: 20141002
  Serious: Yes (Other)
  Sender: FDA-Public Use
  Company Number: FR-NAPPMUNDI-GBR-2013-0015002

PATIENT
  Age: 47 Year
  Sex: Female

DRUGS (4)
  1. OXYCONTIN LP 10 MG, COMPRIME PELLICULE A LIBERATION PROLONGEE [Suspect]
     Indication: PAIN
     Dosage: 10 MG, BID
     Route: 048
     Dates: start: 20130517, end: 20130604
  2. OXYNORM 5 MG, GELULE [Suspect]
     Indication: PAIN
     Dosage: UNK, PRN
     Route: 048
     Dates: start: 20130517, end: 20130604
  3. CORTISONE [Concomitant]
     Dosage: UNK
     Dates: end: 201306
  4. SOPHIDONE LP [Concomitant]

REACTIONS (2)
  - Respiratory failure [Recovered/Resolved]
  - Urticaria [Recovered/Resolved]
